FAERS Safety Report 4711946-9 (Version None)
Quarter: 2005Q3

REPORT INFORMATION
  Report Type: 
  Country: None (occurrence: None)
  Receive Date: 20050708
  Receipt Date: 20041216
  Transmission Date: 20060218
  Serious: Yes (Hospitalization)
  Sender: FDA-Public Use
  Company Number: US-2004-031036

PATIENT
  Age: 38 Year
  Sex: Male

DRUGS (3)
  1. ULTRAVIST 300 [Suspect]
     Indication: COMPUTERISED TOMOGRAM
     Dosage: 80 ML, 1 DOSE, INTRAVENOUS
     Route: 042
     Dates: start: 20040630, end: 20040630
  2. ULTRAVIST 300 [Suspect]
     Indication: COMPUTERISED TOMOGRAM ABDOMEN
     Dosage: 80 ML, 1 DOSE, INTRAVENOUS
     Route: 042
     Dates: start: 20040630, end: 20040630
  3. ULTRAVIST 300 [Suspect]
     Indication: COMPUTERISED TOMOGRAM THORAX
     Dosage: 80 ML, 1 DOSE, INTRAVENOUS
     Route: 042
     Dates: start: 20040630, end: 20040630

REACTIONS (1)
  - GRAND MAL CONVULSION [None]
